FAERS Safety Report 9770330 (Version 1)
Quarter: 2013Q4

REPORT INFORMATION
  Report Type: Spontaneous
  Country: TR (occurrence: TR)
  Receive Date: 20131218
  Receipt Date: 20131218
  Transmission Date: 20140711
  Serious: Yes (Hospitalization)
  Sender: FDA-Public Use
  Company Number: TR-BAYER-2013-151872

PATIENT
  Age: 70 Year
  Sex: Female
  Weight: 95 kg

DRUGS (1)
  1. ASPIRIN [Suspect]

REACTIONS (3)
  - Local swelling [None]
  - Hypertension [None]
  - Abdominal pain [None]
